FAERS Safety Report 18492588 (Version 3)
Quarter: 2023Q4

REPORT INFORMATION
  Report Type: Report from Study
  Country: US (occurrence: US)
  Receive Date: 20201111
  Receipt Date: 20231220
  Transmission Date: 20240109
  Serious: Yes (Hospitalization, Other)
  Sender: FDA-Public Use
  Company Number: US-SHIRE-US201813013AA

PATIENT
  Age: 11 Year
  Sex: Female

DRUGS (1)
  1. HUMAN IMMUNOGLOBULIN G [Suspect]
     Active Substance: HUMAN IMMUNOGLOBULIN G
     Indication: Primary immunodeficiency syndrome
     Dosage: UNK
     Route: 042

REACTIONS (6)
  - Ligament rupture [Unknown]
  - Lyme disease [Unknown]
  - Autoimmune disorder [Unknown]
  - Mood swings [Unknown]
  - Infusion site discharge [Unknown]
  - Malaise [Unknown]

NARRATIVE: CASE EVENT DATE: 20180402
